FAERS Safety Report 4621231-1 (Version None)
Quarter: 2005Q1

REPORT INFORMATION
  Report Type: 
  Country: None (occurrence: None)
  Receive Date: 20050322
  Receipt Date: 20050322
  Transmission Date: 20050727
  Serious: Yes (Hospitalization)
  Sender: FDA-Public Use
  Company Number: None

PATIENT
  Sex: Male

DRUGS (6)
  1. VELCADE [Suspect]
     Indication: NON-HODGKIN'S LYMPHOMA
     Dosage: TD = 1.56 MG 70
  2. CYTOXAN [Suspect]
  3. DOXORUBICIN HCL [Suspect]
  4. VINCRISTINE [Suspect]
  5. PREDNISONE [Suspect]
  6. RITUXAN [Suspect]

REACTIONS (4)
  - ANOREXIA [None]
  - GASTRIC OUTLET OBSTRUCTION [None]
  - NAUSEA [None]
  - VOMITING [None]
